FAERS Safety Report 12123622 (Version 1)
Quarter: 2016Q1

REPORT INFORMATION
  Report Type: Spontaneous
  Country: US (occurrence: None)
  Receive Date: 20160226
  Receipt Date: 20160226
  Transmission Date: 20160526
  Serious: Yes (Life-Threatening, Hospitalization)
  Sender: FDA-Public Use
  Company Number: None

PATIENT
  Age: 51 Year
  Sex: Female
  Weight: 61 kg

DRUGS (1)
  1. HEPARIN SODIUM (PORCINE) 5000 UNITS/ ML FRESINUS KABI [Suspect]
     Active Substance: HEPARIN SODIUM
     Indication: ANTICOAGULANT THERAPY
     Dosage: 28000 UNITS
     Route: 042
     Dates: start: 20160221, end: 20160221

REACTIONS (2)
  - Product quality issue [None]
  - Thrombosis in device [None]

NARRATIVE: CASE EVENT DATE: 20160221
